FAERS Safety Report 5062404-6 (Version None)
Quarter: 2006Q3

REPORT INFORMATION
  Report Type: 
  Country: None (occurrence: None)
  Receive Date: 20060721
  Receipt Date: 20060707
  Transmission Date: 20061208
  Serious: Yes (Other)
  Sender: FDA-Public Use
  Company Number: 2006088129

PATIENT

DRUGS (1)
  1. SOLU-MEDROL [Suspect]
     Indication: DRUG USE FOR UNKNOWN INDICATION
     Dosage: INTRAVENOUS
     Route: 042

REACTIONS (4)
  - CONTRAINDICATION TO MEDICAL TREATMENT [None]
  - EYELID OEDEMA [None]
  - FLUSHING [None]
  - LOCALISED OEDEMA [None]
